FAERS Safety Report 10231306 (Version 1)
Quarter: 2014Q2

REPORT INFORMATION
  Report Type: Spontaneous
  Country: CN (occurrence: CN)
  Receive Date: 20140611
  Receipt Date: 20140611
  Transmission Date: 20141212
  Serious: Yes (Life-Threatening)
  Sender: FDA-Public Use
  Company Number: CN-GLAXOSMITHKLINE-B1001499A

PATIENT
  Age: 22 Year
  Sex: Male
  Weight: 65 kg

DRUGS (1)
  1. LAMICTAL [Suspect]
     Indication: EPILEPSY
     Dosage: 50MG THREE TIMES PER DAY
     Route: 048
     Dates: start: 20130209, end: 20130211

REACTIONS (4)
  - Asphyxia [Recovered/Resolved]
  - Flushing [Recovered/Resolved]
  - Dyspnoea [Recovered/Resolved]
  - Rash generalised [Recovered/Resolved]
